FAERS Safety Report 5514482-5 (Version None)
Quarter: 2007Q4

REPORT INFORMATION
  Report Type: 
  Country: None (occurrence: None)
  Receive Date: 20071106
  Receipt Date: 20070507
  Transmission Date: 20080405
  Serious: Yes (Hospitalization)
  Sender: FDA-Public Use
  Company Number: US200705002024

PATIENT
  Age: 42 Year
  Sex: Female

DRUGS (4)
  1. PROZAC [Suspect]
     Dosage: 40 MG
  2. FLUOXETINE HYDROCHLORIDE [Suspect]
     Dosage: 20 MG
  3. CLONAZEPAM [Concomitant]
  4. NAPROXEN [Concomitant]

REACTIONS (2)
  - DIARRHOEA [None]
  - SUICIDAL IDEATION [None]
